FAERS Safety Report 6245538-X (Version None)
Quarter: 2009Q2

REPORT INFORMATION
  Report Type: 
  Country: None (occurrence: None)
  Receive Date: 20090625
  Receipt Date: 20090622
  Transmission Date: 20091009
  Serious: No
  Sender: FDA-Public Use
  Company Number: US-ASTRAZENECA-2009UW16795

PATIENT
  Age: 30 Year
  Sex: Female

DRUGS (8)
  1. SEROQUEL [Suspect]
     Dosage: 600 MG
     Route: 048
  2. GEODON [Concomitant]
  3. VISTARIL [Concomitant]
  4. EFFEXOR [Concomitant]
  5. AMBIEN [Concomitant]
  6. HALDOL [Concomitant]
  7. CLONOPIN [Concomitant]
  8. DEPAKOTE ER [Concomitant]

REACTIONS (1)
  - WHITE BLOOD CELL COUNT DECREASED [None]
